FAERS Safety Report 5266766-6 (Version None)
Quarter: 2007Q1

REPORT INFORMATION
  Report Type: 
  Country: None (occurrence: None)
  Receive Date: 20070312
  Receipt Date: 20070305
  Transmission Date: 20070707
  Serious: Yes (Other)
  Sender: FDA-Public Use
  Company Number: 237741

PATIENT
  Age: 56 Year
  Sex: Male

DRUGS (5)
  1. XOLAIR [Suspect]
     Indication: ASTHMA
     Dosage: 2 UNIT, 2/MONTH, SUBCUTANEOUS
     Route: 058
     Dates: start: 20041005
  2. ADVAIR DISKUS 100/50 [Concomitant]
  3. SINGULAIR [Concomitant]
  4. THEOPHYLLINE [Concomitant]
  5. XOPENEX (LEVABUTEROL HYDROCHLORIDE) [Concomitant]

REACTIONS (2)
  - KNEE ARTHROPLASTY [None]
  - ROAD TRAFFIC ACCIDENT [None]
